FAERS Safety Report 5811481-0 (Version None)
Quarter: 2008Q3

REPORT INFORMATION
  Report Type: 
  Country: None (occurrence: None)
  Receive Date: 20080714
  Receipt Date: 20080714
  Transmission Date: 20090109
  Serious: No
  Sender: FDA-Public Use
  Company Number: None

PATIENT
  Age: 49 Year
  Sex: Female
  Weight: 67.586 kg

DRUGS (1)
  1. CRESTOR [Suspect]
     Indication: CEREBROVASCULAR ACCIDENT
     Dosage: 10MG QD PO
     Route: 048
     Dates: start: 20071119, end: 20080401

REACTIONS (8)
  - ABDOMINAL PAIN [None]
  - COGNITIVE DISORDER [None]
  - DIZZINESS [None]
  - FATIGUE [None]
  - GAIT DISTURBANCE [None]
  - MUSCULAR WEAKNESS [None]
  - MYALGIA [None]
  - VISION BLURRED [None]
